FAERS Safety Report 4562448-4 (Version None)
Quarter: 2005Q1

REPORT INFORMATION
  Report Type: 
  Country: None (occurrence: None)
  Receive Date: 20050112
  Receipt Date: 20050112
  Transmission Date: 20050727
  Serious: No
  Sender: FDA-Public Use
  Company Number: None

PATIENT

DRUGS (1)
  1. LISINOPRIL [Suspect]
     Dosage: 40 MG ONE PO QD
     Route: 048

REACTIONS (1)
  - HYPERTENSION [None]
